FAERS Safety Report 18364119 (Version 6)
Quarter: 2021Q1

REPORT INFORMATION
  Report Type: Spontaneous
  Country: CA (occurrence: CA)
  Receive Date: 20201009
  Receipt Date: 20210311
  Transmission Date: 20210419
  Serious: Yes (Hospitalization, Other)
  Sender: FDA-Public Use
  Company Number: CA-CELLTRION INC.-2020CA028610

PATIENT

DRUGS (27)
  1. QUINAPRIL. [Suspect]
     Active Substance: QUINAPRIL
     Dosage: 10 MG, 1X/DAY
     Route: 065
  2. PREDNISONE. [Suspect]
     Active Substance: PREDNISONE
     Dosage: UNK
     Route: 065
  3. PRAMIN [METOCLOPRAMIDE HYDROCHLORIDE] [Concomitant]
     Active Substance: METOCLOPRAMIDE HYDROCHLORIDE
     Dosage: UNK
  4. METFORMIN [Suspect]
     Active Substance: METFORMIN HYDROCHLORIDE
     Dosage: 500 MG, 1X/DAY
  5. PREDNISONE. [Suspect]
     Active Substance: PREDNISONE
     Dosage: UNK
     Route: 048
  6. INFLIXIMAB PFIZER (UNKNOWN) [Suspect]
     Active Substance: INFLIXIMAB
     Indication: COLITIS ULCERATIVE
     Dosage: 400 MG
     Route: 042
  7. PREMARIN [Suspect]
     Active Substance: ESTROGENS, CONJUGATED
     Dosage: 0.3 MG, 1X/DAY
     Route: 065
  8. ASACOL [Suspect]
     Active Substance: MESALAMINE
     Dosage: 1600 MG, 3X/DAY
     Route: 048
  9. FELODIPINE. [Suspect]
     Active Substance: FELODIPINE
     Dosage: 5 MG, 1X/DAY
  10. DULAGLUTIDE. [Concomitant]
     Active Substance: DULAGLUTIDE
     Indication: DIABETES MELLITUS
     Dosage: UNK
  11. PREDNISONE. [Suspect]
     Active Substance: PREDNISONE
     Indication: PRURITUS
     Dosage: 45 MG, 1X/DAY
     Route: 048
  12. PREDNISONE. [Suspect]
     Active Substance: PREDNISONE
     Dosage: UNK
     Route: 048
  13. PREDNISONE. [Suspect]
     Active Substance: PREDNISONE
     Dosage: UNK
     Route: 048
  14. SYNTHROID [Suspect]
     Active Substance: LEVOTHYROXINE SODIUM
     Dosage: 0.5 MG, 1X/DAY
     Route: 065
  15. IMIPRAMINE HYDROCHLORIDE. [Concomitant]
     Active Substance: IMIPRAMINE HYDROCHLORIDE
     Dosage: UNK
  16. QUINAPRIL. [Suspect]
     Active Substance: QUINAPRIL
     Dosage: 10 MG, 1X/DAY
     Route: 065
  17. REMICADE [Suspect]
     Active Substance: INFLIXIMAB
     Indication: COLITIS ULCERATIVE
     Dosage: 400 MG
     Route: 042
  18. PREDNISONE. [Suspect]
     Active Substance: PREDNISONE
     Dosage: 45 MG, 1X/DAY
     Route: 048
  19. PREDNISONE. [Suspect]
     Active Substance: PREDNISONE
     Dosage: UNK
     Route: 048
  20. SYNTHROID [Suspect]
     Active Substance: LEVOTHYROXINE SODIUM
     Dosage: 0.5 MG, 1X/DAY
     Route: 065
  21. PREDNISONE. [Suspect]
     Active Substance: PREDNISONE
     Dosage: 45 MG, 1X/DAY
     Route: 048
  22. ASACOL [Suspect]
     Active Substance: MESALAMINE
     Dosage: 1600 MG, 3X/DAY
     Route: 048
  23. PREDNISONE. [Suspect]
     Active Substance: PREDNISONE
     Dosage: UNK
     Route: 048
  24. METOCLOPRAMIDE HYDROCHLORIDE. [Concomitant]
     Active Substance: METOCLOPRAMIDE HYDROCHLORIDE
     Dosage: UNK
  25. TOVIAZ [Suspect]
     Active Substance: FESOTERODINE FUMARATE
     Dosage: 4 MG, 1X/DAY
     Route: 065
  26. PREDNISONE. [Suspect]
     Active Substance: PREDNISONE
     Dosage: 45 MG, 1X/DAY
     Route: 048
  27. PREDNISONE. [Suspect]
     Active Substance: PREDNISONE
     Dosage: 45 MG, 1X/DAY
     Route: 048

REACTIONS (5)
  - Colitis [Unknown]
  - Colitis ulcerative [Unknown]
  - Frequent bowel movements [Unknown]
  - Rectal haemorrhage [Unknown]
  - Decreased activity [Unknown]
